FAERS Safety Report 13705880 (Version 1)
Quarter: 2017Q2

REPORT INFORMATION
  Report Type: Spontaneous
  Country: US (occurrence: US)
  Receive Date: 20170630
  Receipt Date: 20170630
  Transmission Date: 20170830
  Serious: Yes (Other)
  Sender: FDA-Public Use
  Company Number: GXBR2017US002078

PATIENT
  Sex: Female

DRUGS (2)
  1. CLARITHROMYCIN. [Concomitant]
     Active Substance: CLARITHROMYCIN
     Indication: LUNG DISORDER
     Dosage: UNK DF, UNK
     Route: 065
  2. CEFTRIAXONE. [Suspect]
     Active Substance: CEFTRIAXONE
     Indication: KIDNEY INFECTION
     Dosage: 1 DF, ONCE/SINGLE
     Route: 065

REACTIONS (2)
  - Abdominal discomfort [Recovered/Resolved]
  - Rectal haemorrhage [Recovered/Resolved]
